FAERS Safety Report 6790559-1 (Version None)
Quarter: 2010Q2

REPORT INFORMATION
  Report Type: 
  Country: None (occurrence: None)
  Receive Date: 20100624
  Receipt Date: 20100615
  Transmission Date: 20101027
  Serious: Yes (Hospitalization)
  Sender: FDA-Public Use
  Company Number: US-ROCHE-710675

PATIENT
  Sex: Female
  Weight: 75.8 kg

DRUGS (12)
  1. BEVACIZUMAB [Suspect]
     Route: 042
     Dates: start: 20090601
  2. BEVACIZUMAB [Suspect]
     Dosage: STRENGTH REPORTED AS 400 MG VIAL
     Route: 042
     Dates: start: 20100521
  3. GEMCITABINE HCL [Suspect]
     Route: 042
     Dates: start: 20090701
  4. GEMCITABINE HCL [Suspect]
     Dosage: STRENGHT REPORTED AS 1 GRAM VIAL
     Route: 042
     Dates: start: 20100521
  5. PACLITAXEL [Suspect]
     Route: 042
     Dates: start: 20090701
  6. PACLITAXEL [Suspect]
     Dosage: LAST DOSE ON 21 MAY 2010
     Route: 042
  7. SINGULAIR [Concomitant]
     Dosage: FREQUENCY REPORTED AS DAILY.
     Route: 048
  8. FLONASE [Concomitant]
     Dosage: FREQUENCY REPORTED AS DAILY.
     Route: 048
  9. CLARITIN [Concomitant]
     Dosage: FREQUENCY REPORTED AS DAILY.
     Route: 048
  10. ZOCOR [Concomitant]
     Dosage: FREQUENCY REPORTED AS DAILY.
  11. SANCTURA [Concomitant]
     Dosage: FREQUENCY REPORTED AS DAILY.
  12. ZOMETA [Concomitant]
     Dosage: FREQUENCY REPORTED AS MONTHLY

REACTIONS (2)
  - MUSCULAR WEAKNESS [None]
  - NUCLEAR MAGNETIC RESONANCE IMAGING ABNORMAL [None]
